FAERS Safety Report 8095004-4 (Version None)
Quarter: 2012Q1

REPORT INFORMATION
  Report Type: 
  Country: None (occurrence: None)
  Receive Date: 20120131
  Receipt Date: 20120131
  Transmission Date: 20120608
  Serious: Yes (Hospitalization)
  Sender: FDA-Public Use
  Company Number: None

PATIENT
  Age: 57 Year
  Sex: Male
  Weight: 92 kg

DRUGS (10)
  1. METHYLPHENIDATE LA [Concomitant]
     Route: 048
  2. PREGABALIN [Concomitant]
     Route: 048
  3. CYMBALTA [Suspect]
     Route: 048
  4. PRISTIQ [Suspect]
     Indication: DEPRESSION
     Dosage: 100.0 MG
     Route: 048
  5. BYETTA [Suspect]
     Route: 058
  6. BUPROPION HYDROCHLORIDE [Concomitant]
     Route: 048
  7. NEBIVILOL [Concomitant]
  8. CLONAZEPAM [Concomitant]
  9. CLONIDINE [Concomitant]
     Route: 048
  10. METHYLPHENIDATE LA [Concomitant]
     Route: 048

REACTIONS (5)
  - ASTHENIA [None]
  - DEHYDRATION [None]
  - VOMITING [None]
  - LETHARGY [None]
  - NAUSEA [None]
